FAERS Safety Report 16465451 (Version 1)
Quarter: 2019Q2

REPORT INFORMATION
  Report Type: Spontaneous
  Country: GR (occurrence: GR)
  Receive Date: 20190621
  Receipt Date: 20190621
  Transmission Date: 20190711
  Serious: Yes (Life-Threatening)
  Sender: FDA-Public Use
  Company Number: GR-MYLANLABS-2019M1057813

PATIENT
  Age: 56 Year
  Sex: Male

DRUGS (1)
  1. SIMVASTATIN MYLAN 10 MG POTAHOVAN? TABLETY [Suspect]
     Active Substance: SIMVASTATIN
     Indication: HYPERCHOLESTEROLAEMIA
     Dosage: 1 DOSAGE FORM, QD
     Route: 048

REACTIONS (2)
  - Negative thoughts [Recovered/Resolved]
  - Suicidal ideation [Recovered/Resolved]
